FAERS Safety Report 17061947 (Version 1)
Quarter: 2019Q4

REPORT INFORMATION
  Report Type: Spontaneous
  Country: US (occurrence: US)
  Receive Date: 20191121
  Receipt Date: 20191121
  Transmission Date: 20200122
  Serious: No
  Sender: FDA-Public Use
  Company Number: US-INTERCEPT-PMOCA2017000232

PATIENT
  Age: 40 Year
  Sex: Female

DRUGS (3)
  1. OCALIVA [Suspect]
     Active Substance: OBETICHOLIC ACID
     Dosage: 5 MG, UNK
     Route: 065
     Dates: start: 2017
  2. OCALIVA [Suspect]
     Active Substance: OBETICHOLIC ACID
     Indication: PRIMARY BILIARY CHOLANGITIS
     Dosage: 5 MG, QD
     Route: 048
     Dates: start: 201703
  3. URSODIOL. [Concomitant]
     Active Substance: URSODIOL
     Dosage: 1000 MG, UNK
     Dates: start: 2011

REACTIONS (12)
  - Joint stiffness [Unknown]
  - Rash pruritic [Unknown]
  - Somnolence [Unknown]
  - Exercise tolerance decreased [Unknown]
  - Pruritus [Unknown]
  - Formication [Unknown]
  - Micturition urgency [Unknown]
  - Red blood cell sedimentation rate increased [Unknown]
  - Asthenia [Unknown]
  - Weight increased [Unknown]
  - Dizziness [Unknown]
  - Fatigue [Unknown]

NARRATIVE: CASE EVENT DATE: 2017
